FAERS Safety Report 25628540 (Version 2)
Quarter: 2025Q4

REPORT INFORMATION
  Report Type: Spontaneous
  Country: GB (occurrence: GB)
  Receive Date: 20250731
  Receipt Date: 20251003
  Transmission Date: 20260117
  Serious: Yes (Other)
  Sender: TORRENT PHARMA INC.
  Company Number: None

PATIENT
  Age: 84 Year
  Sex: Male
  Weight: 85 kg

DRUGS (3)
  1. APIXABAN [Suspect]
     Active Substance: APIXABAN
     Indication: Product used for unknown indication
     Dosage: ONE TO BE TAKEN TWICE A DAY
     Route: 065
     Dates: start: 20171127, end: 20250402
  2. FUCIDIN [Concomitant]
     Active Substance: FUSIDATE SODIUM
     Indication: Bladder catheterisation
     Dosage: APPLY THREE TIMES A DAY
     Route: 065
     Dates: start: 20250623
  3. SODIUM CHLORIDE [Concomitant]
     Active Substance: SODIUM CHLORIDE
     Indication: Product used for unknown indication
     Dosage: AS DIRECTED
     Route: 065
     Dates: start: 20250520, end: 20250702

REACTIONS (2)
  - Upper gastrointestinal haemorrhage [Recovering/Resolving]
  - Haematuria [Unknown]
